FAERS Safety Report 8612131-0 (Version None)
Quarter: 2012Q3

REPORT INFORMATION
  Report Type: 
  Country: None (occurrence: None)
  Receive Date: 20120822
  Receipt Date: 20120820
  Transmission Date: 20120928
  Serious: No
  Sender: FDA-Public Use
  Company Number: US-PFIZER INC-2012204425

PATIENT
  Age: 67 Year
  Sex: Female
  Weight: 54.422 kg

DRUGS (8)
  1. ADVAIR DISKUS 100/50 [Concomitant]
     Indication: ASTHMA
     Dosage: 250/50 MCG, UNK
  2. ADVAIR DISKUS 100/50 [Concomitant]
     Indication: CHRONIC OBSTRUCTIVE PULMONARY DISEASE
  3. LYRICA [Suspect]
     Indication: NEUROPATHY PERIPHERAL
     Dosage: 100 MG, 1X/DAY
     Route: 048
     Dates: end: 20120701
  4. METFORMIN [Concomitant]
     Indication: DIABETES MELLITUS
     Dosage: 1000 MG 2X/DAY (MORNING AND NIGHT) AND 500 MG AT NOON
  5. HYDROCODONE BITARTRATE + ACETAMINOPHEN [Concomitant]
     Indication: ARTHRITIS
     Dosage: 10/325 MG, AS NEEDED
  6. SPIRIVA [Concomitant]
     Indication: ASTHMA
     Dosage: UNK, 2X/DAY
  7. VENTOLIN HFA [Concomitant]
     Indication: ASTHMA
     Dosage: UNK, 2X/DAY
  8. FLUOXETINE [Concomitant]
     Indication: INSOMNIA
     Dosage: 20 MG, 1X/DAY

REACTIONS (3)
  - EXPIRED DRUG ADMINISTERED [None]
  - PAIN IN EXTREMITY [None]
  - MIDDLE INSOMNIA [None]
